FAERS Safety Report 6480877-9 (Version None)
Quarter: 2009Q4

REPORT INFORMATION
  Report Type: 
  Country: None (occurrence: None)
  Receive Date: 20091208
  Receipt Date: 20090306
  Transmission Date: 20100525
  Serious: No
  Sender: FDA-Public Use
  Company Number: US-AMGEN-KDL337266

PATIENT
  Sex: Female

DRUGS (4)
  1. ENBREL [Suspect]
     Indication: RHEUMATOID ARTHRITIS
     Route: 058
  2. SYNTHROID [Concomitant]
  3. PROGESTERONE [Concomitant]
  4. ESTROGEN NOS [Concomitant]

REACTIONS (3)
  - HIGH FREQUENCY ABLATION [None]
  - NASOPHARYNGITIS [None]
  - UMBILICAL HERNIA [None]
